FAERS Safety Report 22155680 (Version 1)
Quarter: 2023Q1

REPORT INFORMATION
  Report Type: Spontaneous
  Country: US (occurrence: US)
  Receive Date: 20230330
  Receipt Date: 20230330
  Transmission Date: 20230418
  Serious: Yes (Hospitalization)
  Sender: FDA-Public Use
  Company Number: US-SUN PHARMACEUTICAL INDUSTRIES LTD-2023R1-382783

PATIENT
  Age: 59 Year
  Sex: Male

DRUGS (9)
  1. CLOPIDOGREL [Suspect]
     Active Substance: CLOPIDOGREL BISULFATE
     Indication: Hypertension
     Dosage: UNK
     Route: 065
  2. CLOPIDOGREL [Suspect]
     Active Substance: CLOPIDOGREL BISULFATE
     Indication: Tachycardia
  3. CLOPIDOGREL [Suspect]
     Active Substance: CLOPIDOGREL BISULFATE
     Indication: Electrocardiogram ST segment elevation
  4. ASPIRIN [Suspect]
     Active Substance: ASPIRIN
     Indication: Electrocardiogram ST segment elevation
     Dosage: UNK
     Route: 065
  5. ASPIRIN [Suspect]
     Active Substance: ASPIRIN
     Indication: Hypertension
  6. ASPIRIN [Suspect]
     Active Substance: ASPIRIN
     Indication: Tachycardia
  7. TENECTEPLASE [Suspect]
     Active Substance: TENECTEPLASE
     Indication: Hypertension
     Dosage: UNK
     Route: 065
  8. TENECTEPLASE [Suspect]
     Active Substance: TENECTEPLASE
     Indication: Tachycardia
  9. TENECTEPLASE [Suspect]
     Active Substance: TENECTEPLASE
     Indication: Electrocardiogram ST segment elevation

REACTIONS (1)
  - Drug ineffective [Unknown]
